FAERS Safety Report 8984334 (Version 3)
Quarter: 2013Q1

REPORT INFORMATION
  Report Type: Spontaneous
  Country: JP (occurrence: JP)
  Receive Date: 20121226
  Receipt Date: 20130322
  Transmission Date: 20140127
  Serious: Yes (Life-Threatening, Hospitalization, Other)
  Sender: FDA-Public Use
  Company Number: JP-SANOFI-AVENTIS-2012SA093802

PATIENT
  Age: 74 Year
  Sex: Male
  Weight: 80 kg

DRUGS (18)
  1. ELPLAT [Suspect]
     Indication: RECTAL CANCER
     Route: 041
     Dates: start: 20121126, end: 20121126
  2. XELODA [Suspect]
     Indication: RECTAL CANCER
     Route: 048
     Dates: start: 20121126, end: 20121209
  3. AVASTIN [Concomitant]
     Dates: start: 20121126, end: 20121126
  4. SEROTONE [Concomitant]
     Dates: start: 20111126, end: 20111126
  5. GASTER D [Concomitant]
     Dates: start: 201110
  6. AZULENE/LEVOGLUTAMIDE [Concomitant]
     Dosage: FINE GRANULES
  7. MICARDIS [Concomitant]
     Dates: start: 201110
  8. DECADRON /CAN/ [Concomitant]
     Dates: start: 20121126, end: 20121126
  9. VANCOMYCIN [Concomitant]
     Dates: start: 20121214, end: 20121218
  10. NEOLAMIN 3B INJ. [Concomitant]
     Dates: start: 20121211, end: 20121211
  11. METILON [Concomitant]
     Dates: start: 20121211, end: 20121211
  12. SULBACILLIN [Concomitant]
     Dates: start: 20121211, end: 20121213
  13. ELECTROLYTE SOLUTIONS [Concomitant]
     Dates: start: 20121212, end: 20121220
  14. BIOFERMIN [Concomitant]
     Dosage: FORM: POWDER
     Dates: start: 20121212, end: 20121218
  15. PENTAGIN [Concomitant]
     Dates: start: 20121213, end: 20121213
  16. BUSCOPAN [Concomitant]
     Dates: start: 20121213, end: 20121213
  17. SOLDEM 3 [Concomitant]
     Dates: start: 20121211, end: 20121220
  18. VEEN D [Concomitant]
     Dates: start: 20121211, end: 20121217

REACTIONS (8)
  - Rhabdomyolysis [Recovered/Resolved]
  - Decreased appetite [Recovered/Resolved]
  - Diarrhoea [Recovered/Resolved]
  - Nausea [Recovered/Resolved]
  - Vomiting [Recovered/Resolved]
  - Peripheral sensory neuropathy [Unknown]
  - Platelet count decreased [Unknown]
  - Neutrophil count decreased [Unknown]
